FAERS Safety Report 21554597 (Version 12)
Quarter: 2023Q4

REPORT INFORMATION
  Report Type: Report from Study
  Country: GR (occurrence: GR)
  Receive Date: 20221104
  Receipt Date: 20231030
  Transmission Date: 20240109
  Serious: Yes (Hospitalization, Other)
  Sender: FDA-Public Use
  Company Number: GR-ABBVIE-4187168

PATIENT
  Age: 76 Year
  Sex: Female
  Weight: 75 kg

DRUGS (13)
  1. CARBIDOPA\LEVODOPA [Suspect]
     Active Substance: CARBIDOPA\LEVODOPA
     Indication: Parkinson^s disease
     Dosage: MORNING DOSE: 8.2 ML; CONTINUOUS RATE: 3.1 ML/H; EXTRA DOSE: 1.3 ML
     Route: 050
     Dates: start: 20211109
  2. CARBIDOPA\LEVODOPA [Suspect]
     Active Substance: CARBIDOPA\LEVODOPA
     Dosage: MORNING DOSE: 8.2 ML; CONTINUOUS RATE: 3.1 ML/H; EXTRA DOSE: 1.3 ML
     Route: 050
  3. CARBIDOPA\LEVODOPA [Suspect]
     Active Substance: CARBIDOPA\LEVODOPA
     Dosage: MORNING DOSE: 8.2 ML; CONTINUOUS RATE: 3.1 ML/H; EXTRA DOSE: 1.3 ML
     Route: 050
  4. CARBIDOPA\LEVODOPA [Suspect]
     Active Substance: CARBIDOPA\LEVODOPA
     Dosage: MORNING DOSE: 9.0 ML; CONTINUOUS RATE: 3.1 ML/H; EXTRA DOSE: 1.3 ML
     Route: 050
  5. LEVOTHYROXINE [Concomitant]
     Active Substance: LEVOTHYROXINE
     Indication: Product used for unknown indication
     Dosage: LEVOTHYROXINE (T4)
     Route: 065
  6. DULOXETINE [Concomitant]
     Active Substance: DULOXETINE
     Indication: Product used for unknown indication
     Dosage: DULOXETINE (CYMBALTA)
     Route: 065
  7. MAGNESIUM [Concomitant]
     Active Substance: MAGNESIUM
     Indication: Product used for unknown indication
     Dosage: UNIT DOSE: 121.56MG?MAGNESIUM (TROFOCARD)
     Route: 065
  8. ENOXAPARIN [Concomitant]
     Active Substance: ENOXAPARIN
     Indication: Product used for unknown indication
     Dosage: UNIT DOSE: 4000 IU/ 0.4ML,?ENOXAPARIN (CLEXANE)
     Route: 065
  9. METOCLOPRAMIDE [Concomitant]
     Active Substance: METOCLOPRAMIDE
     Indication: Product used for unknown indication
     Dosage: UNIT DOSE: 5MG/ 5 ML?METOCLOPRAMIDE (PRIMPERAN)?FREQUENCY TEXT: 15ML X 2 PER DAY
     Route: 065
  10. NEUPRO [Concomitant]
     Active Substance: ROTIGOTINE
     Indication: Product used for unknown indication
     Dosage: ROTIGOTINE (NEUPRO)
     Route: 065
  11. LACOSAMIDE [Concomitant]
     Active Substance: LACOSAMIDE
     Indication: Product used for unknown indication
     Dosage: (LACOSAMIDE (KANILAD))
     Route: 065
  12. BRIVIACT [Concomitant]
     Active Substance: BRIVARACETAM
     Indication: Product used for unknown indication
     Dosage: BRIVARACETAM (BRIVIACT)
     Route: 065
  13. IPRATROPIUM [Concomitant]
     Active Substance: IPRATROPIUM
     Indication: Product used for unknown indication
     Dosage: IPRATROPIUM (ZYROLEN)
     Route: 065

REACTIONS (10)
  - Head injury [Unknown]
  - Fall [Recovered/Resolved]
  - Epilepsy [Not Recovered/Not Resolved]
  - Communication disorder [Unknown]
  - Epilepsy [Recovered/Resolved]
  - Delayed recovery from anaesthesia [Unknown]
  - Bedridden [Not Recovered/Not Resolved]
  - Epilepsy [Recovered/Resolved]
  - Unevaluable event [Unknown]
  - Subdural haematoma [Recovered/Resolved]

NARRATIVE: CASE EVENT DATE: 20221001
